FAERS Safety Report 7978490-7 (Version None)
Quarter: 2011Q4

REPORT INFORMATION
  Report Type: 
  Country: None (occurrence: None)
  Receive Date: 20111214
  Receipt Date: 20111206
  Transmission Date: 20120403
  Serious: Yes (Hospitalization)
  Sender: FDA-Public Use
  Company Number: JP-JNJFOC-20111204370

PATIENT
  Age: 54 Year
  Sex: Female

DRUGS (7)
  1. LEVOFLOXACIN [Suspect]
     Indication: CYSTITIS
     Route: 048
     Dates: start: 20110425, end: 20110429
  2. LANSOPRAZOLE [Concomitant]
     Route: 065
  3. ALEROFF [Concomitant]
     Route: 065
  4. LEVOFLOXACIN [Suspect]
     Route: 048
     Dates: start: 20110509, end: 20110515
  5. PANCREAZE [Concomitant]
     Route: 065
  6. LEVOFLOXACIN [Suspect]
     Route: 048
     Dates: start: 20110523, end: 20110609
  7. CAMOSTATE [Concomitant]
     Route: 065

REACTIONS (1)
  - LIGAMENT RUPTURE [None]
